FAERS Safety Report 4512042-6 (Version None)
Quarter: 2004Q4

REPORT INFORMATION
  Report Type: 
  Country: None (occurrence: None)
  Receive Date: 20041123
  Receipt Date: 20041110
  Transmission Date: 20050328
  Serious: Yes (Death)
  Sender: FDA-Public Use
  Company Number: HQWYE393711NOV04

PATIENT
  Sex: Male

DRUGS (1)
  1. EFFEXOR XR [Suspect]

REACTIONS (6)
  - ANXIETY [None]
  - CHEST INJURY [None]
  - COMPLETED SUICIDE [None]
  - FEELING OF DESPAIR [None]
  - GUN SHOT WOUND [None]
  - SUICIDAL IDEATION [None]
